FAERS Safety Report 15497216 (Version 1)
Quarter: 2018Q4

REPORT INFORMATION
  Report Type: Spontaneous
  Country: US (occurrence: US)
  Receive Date: 20181013
  Receipt Date: 20181013
  Transmission Date: 20190205
  Serious: Yes (Hospitalization, Other)
  Sender: FDA-Public Use
  Company Number: None

PATIENT
  Age: 60 Year
  Sex: Male
  Weight: 71 kg

DRUGS (12)
  1. HEPARIN 5000U SC Q8H [Concomitant]
     Dates: start: 20180915
  2. PREDNISONE 10MG PO DAILY [Concomitant]
     Dates: start: 20180915
  3. IOHEXOL (OMNIPAQUE 350/125ML) INJ 125 ML IV ONCE [Concomitant]
     Dates: start: 20180915
  4. MAALOX 30ML PO Q6H PRN [Concomitant]
     Dates: start: 20180915
  5. GADOBUTROL (GADAVIST) INJ 7.1MMOL IV ONCE NOW [Concomitant]
     Dates: start: 20180915
  6. ACETAMINOPHEN 975MG PO Q8H PRN [Concomitant]
     Dates: start: 20180915
  7. LISINOPRIL. [Suspect]
     Active Substance: LISINOPRIL
     Indication: HYPERTENSION
     Route: 048
     Dates: start: 20180917, end: 20180917
  8. CHOLECALICIFEROL 1000U DAILY [Concomitant]
     Dates: start: 20180917, end: 20180918
  9. PANTOPRAZOLE 40MG PO DAILY [Concomitant]
     Dates: start: 20180915
  10. TAMSULOSIN 0.4MG PO DAILY [Concomitant]
     Dates: start: 20180915
  11. HYDRALAZINE INJ 5MG IV Q4H PRN [Concomitant]
     Dates: start: 20180915
  12. AMLODIPINE 10MG PO DAILY [Concomitant]
     Dates: start: 20180915

REACTIONS (1)
  - Blood creatinine increased [None]

NARRATIVE: CASE EVENT DATE: 20180917
